FAERS Safety Report 5733628-7 (Version None)
Quarter: 2008Q2

REPORT INFORMATION
  Report Type: 
  Country: None (occurrence: None)
  Receive Date: 20080509
  Receipt Date: 20080416
  Transmission Date: 20081010
  Serious: Yes (Hospitalization)
  Sender: FDA-Public Use
  Company Number: HK-PFIZER INC-2006026951

PATIENT
  Sex: Female
  Weight: 55.3 kg

DRUGS (11)
  1. GABAPENTIN [Suspect]
     Route: 048
     Dates: start: 20041201, end: 20060312
  2. PLACEBO [Suspect]
     Indication: OSTEOPOROSIS
     Dosage: DAILY DOSE:0MG
     Route: 048
     Dates: start: 20020823, end: 20060216
  3. FLUVASTATIN [Suspect]
     Route: 048
     Dates: start: 20041005, end: 20060312
  4. CALTRATE + D [Concomitant]
     Route: 048
  5. ACETYLSALICYLIC ACID SRT [Concomitant]
     Route: 048
  6. AMITRIPTLINE HCL [Concomitant]
     Route: 048
  7. METOPROLOL TARTRATE [Concomitant]
     Route: 048
  8. HERBAL PREPARATION INGREDIENTS UNKNOWN [Concomitant]
     Route: 048
  9. HERBAL PREPARATION INGREDIENTS UNKNOWN [Concomitant]
     Route: 061
  10. CLOTRIMAZOLE [Concomitant]
     Route: 061
  11. NIFEDIPINE [Concomitant]
     Route: 048

REACTIONS (4)
  - BACK PAIN [None]
  - FALL [None]
  - HEPATIC FUNCTION ABNORMAL [None]
  - PYREXIA [None]
